FAERS Safety Report 9522063 (Version 2)
Quarter: 2013Q3

REPORT INFORMATION
  Report Type: Spontaneous
  Country: IN (occurrence: None)
  Receive Date: 20130911
  Receipt Date: 20130920
  Transmission Date: 20140515
  Serious: Yes (Other)
  Sender: FDA-Public Use
  Company Number: FK201304039

PATIENT
  Age: 12 Year
  Sex: Male

DRUGS (2)
  1. ETOPOSIDE [Suspect]
     Indication: ACUTE MYELOID LEUKAEMIA
  2. OTHER ANTINEOPLASTIC AGENTS [Concomitant]
     Indication: ACUTE MYELOID LEUKAEMIA

REACTIONS (4)
  - Rash maculo-papular [None]
  - Neutropenic colitis [None]
  - Hypokalaemia [None]
  - Intestinal obstruction [None]
